FAERS Safety Report 5206703-3 (Version None)
Quarter: 2006Q4

REPORT INFORMATION
  Report Type: 
  Country: None (occurrence: None)
  Receive Date: 20061030
  Receipt Date: 20060828
  Transmission Date: 20070319
  Serious: No
  Sender: FDA-Public Use
  Company Number: 256476

PATIENT
  Age: 82 Year
  Sex: Female
  Weight: 68 kg

DRUGS (5)
  1. LEVEMIR [Suspect]
     Indication: INSULIN-REQUIRING TYPE II DIABETES MELLITUS
     Dosage: 14 IU, QD AT H.S., SUBCUTANEOUS
     Route: 058
     Dates: start: 20060827
  2. NOVOLOG [Concomitant]
  3. NOVOFINE 30 (NEEDLE) [Concomitant]
  4. NORVASC   /00972401/(AMLODIPINE) [Concomitant]
  5. ALTACE [Concomitant]

REACTIONS (1)
  - BLOOD GLUCOSE INCREASED [None]
